FAERS Safety Report 17182172 (Version 1)
Quarter: 2019Q4

REPORT INFORMATION
  Report Type: Spontaneous
  Country: US (occurrence: US)
  Receive Date: 20191126
  Receipt Date: 20191126
  Transmission Date: 20200122
  Serious: No
  Sender: FDA-Public Use
  Company Number: None

PATIENT
  Age: 52 Year
  Sex: Female
  Weight: 74.84 kg

DRUGS (5)
  1. IBUPROFEN. [Concomitant]
     Active Substance: IBUPROFEN
  2. EMGALITY [Suspect]
     Active Substance: GALCANEZUMAB-GNLM
     Indication: MIGRAINE
     Dosage: ?          QUANTITY:ONE INJECTION;OTHER ROUTE:INJECTION?
     Dates: start: 20181207, end: 20190111
  3. VITAMIN D BOOSTER [Concomitant]
  4. EXCEDRINE [Concomitant]
  5. MIRALAX [Concomitant]
     Active Substance: POLYETHYLENE GLYCOL 3350

REACTIONS (14)
  - Restless legs syndrome [None]
  - Influenza like illness [None]
  - Constipation [None]
  - Abdominal pain [None]
  - Dry mouth [None]
  - Headache [None]
  - Injection site swelling [None]
  - Musculoskeletal stiffness [None]
  - Injection site pain [None]
  - Dyspnoea [None]
  - Myalgia [None]
  - Abdominal pain upper [None]
  - Bone pain [None]
  - Arthralgia [None]

NARRATIVE: CASE EVENT DATE: 20181207
